FAERS Safety Report 5444471-0 (Version None)
Quarter: 2007Q3

REPORT INFORMATION
  Report Type: 
  Country: None (occurrence: None)
  Receive Date: 20070906
  Receipt Date: 20070903
  Transmission Date: 20080115
  Serious: Yes (Death, Other)
  Sender: FDA-Public Use
  Company Number: DE-JNJFOC-20070900081

PATIENT
  Age: 68 Year
  Sex: Female

DRUGS (1)
  1. KETOCONAZOLE [Suspect]
     Indication: BLOOD CORTISOL INCREASED
     Route: 065

REACTIONS (2)
  - METASTASES TO CENTRAL NERVOUS SYSTEM [None]
  - OFF LABEL USE [None]
